FAERS Safety Report 25224711 (Version 2)
Quarter: 2025Q2

REPORT INFORMATION
  Report Type: Spontaneous
  Country: JP (occurrence: JP)
  Receive Date: 20250422
  Receipt Date: 20250608
  Transmission Date: 20250716
  Serious: Yes (Hospitalization)
  Sender: CSL BEHRING
  Company Number: JP-BEH-2025202109

PATIENT
  Sex: Male

DRUGS (14)
  1. PRIVIGEN [Suspect]
     Active Substance: HUMAN IMMUNOGLOBULIN G
     Indication: Chronic inflammatory demyelinating polyradiculoneuropathy
     Route: 042
     Dates: start: 20240418, end: 20240422
  2. PRIVIGEN [Suspect]
     Active Substance: HUMAN IMMUNOGLOBULIN G
     Route: 042
     Dates: start: 20240508, end: 20240512
  3. PRIVIGEN [Suspect]
     Active Substance: HUMAN IMMUNOGLOBULIN G
     Route: 042
     Dates: start: 20240613, end: 20240617
  4. PRIVIGEN [Suspect]
     Active Substance: HUMAN IMMUNOGLOBULIN G
     Dosage: UNK, QMT
     Route: 042
     Dates: end: 202412
  5. PRIVIGEN [Suspect]
     Active Substance: HUMAN IMMUNOGLOBULIN G
     Dosage: 1 G, Q3W
     Route: 042
  6. Bilanoa od [Concomitant]
     Dosage: 20 MG, HS
     Dates: start: 20240315
  7. PRANLUKAST [Concomitant]
     Active Substance: PRANLUKAST
     Dosage: 112.5 MG, BID (AFTER MORNING AND EVENING MEALS)
     Dates: start: 20240315
  8. OLOPATADINE [Concomitant]
     Active Substance: OLOPATADINE
     Dates: start: 20240315
  9. FLUTICASONE FUROATE [Concomitant]
     Active Substance: FLUTICASONE FUROATE
     Dates: start: 20240315
  10. CELECOXIB [Concomitant]
     Active Substance: CELECOXIB
     Dosage: 100 MG, BID (AFTER MORNING AND EVENING MEALS)
     Dates: start: 20250319
  11. PREGABALIN [Concomitant]
     Active Substance: PREGABALIN
     Dosage: 75 MG, BID (AFTER MORNING AND EVENING MEALS)
     Dates: start: 20240319
  12. ESOMEPRAZOLE [Concomitant]
     Active Substance: ESOMEPRAZOLE
     Dosage: 10 MG, QD (AFTER MORNING MEAL)
     Dates: start: 20240319
  13. LIMAPROST [Concomitant]
     Active Substance: LIMAPROST
     Dosage: 5 ?G, TID (AFTER EACH MEAL)
     Dates: start: 20240319
  14. KETOPROFEN [Concomitant]
     Active Substance: KETOPROFEN
     Dates: start: 20240319

REACTIONS (1)
  - Muscular weakness [Recovering/Resolving]

NARRATIVE: CASE EVENT DATE: 20240606
